FAERS Safety Report 24758434 (Version 1)
Quarter: 2024Q4

REPORT INFORMATION
  Report Type: Spontaneous
  Country: GB (occurrence: GB)
  Receive Date: 20241220
  Receipt Date: 20241220
  Transmission Date: 20250115
  Serious: Yes (Other)
  Sender: ADVANZ PHARMA
  Company Number: None

PATIENT

DRUGS (6)
  1. PREDNISOLONE [Suspect]
     Active Substance: PREDNISOLONE
     Dosage: 80 MG, QD (TABLET)
     Route: 048
     Dates: start: 20241023
  2. Clinitas Carbomer [Concomitant]
     Dosage: 0.2 %, QID (IN BOTH EYES), OCULAR USE
     Dates: start: 20231204
  3. CARBIMAZOLE [Concomitant]
     Active Substance: CARBIMAZOLE
     Dosage: 80 MG, QD
     Route: 048
     Dates: start: 20241017
  4. PROPRANOLOL [Concomitant]
     Active Substance: PROPRANOLOL HYDROCHLORIDE
     Dosage: 80 MG, QD (EACH MORNING)
     Dates: start: 20240710
  5. Hylo Night [Concomitant]
     Dosage: UNK (APPLY 1 CM TO AFFECTED EYE (S) AT NIGHT)
  6. IODINE\POTASSIUM IODIDE [Concomitant]
     Active Substance: IODINE\POTASSIUM IODIDE
     Dosage: 0.3 ML, TID
     Route: 048
     Dates: start: 20241029

REACTIONS (1)
  - Psychiatric symptom [Unknown]
